FAERS Safety Report 16783615 (Version 5)
Quarter: 2020Q1

REPORT INFORMATION
  Report Type: Report from Study
  Country: HK (occurrence: HK)
  Receive Date: 20190908
  Receipt Date: 20200122
  Transmission Date: 20200409
  Serious: Yes (Death, Hospitalization)
  Sender: FDA-Public Use
  Company Number: HK-ROCHE-2395791

PATIENT
  Age: 59 Year
  Sex: Male

DRUGS (5)
  1. PEMETREXED. [Suspect]
     Active Substance: PEMETREXED
     Indication: NON-SMALL CELL LUNG CANCER METASTATIC
     Dosage: MOST RECENT DOSE OF PEMETREXED (800 MG) ON 11/JUN/2019
     Route: 042
     Dates: start: 20181221, end: 20190611
  2. CARBOPLATIN. [Suspect]
     Active Substance: CARBOPLATIN
     Indication: NON-SMALL CELL LUNG CANCER METASTATIC
     Dosage: MOST RECENT DOSE OF CARBOPLATIN (400 MG) ON 04/APR/2019
     Route: 042
     Dates: start: 20181221
  3. AFATINIB [Concomitant]
     Active Substance: AFATINIB
     Route: 065
     Dates: start: 201907
  4. ATEZOLIZUMAB. [Suspect]
     Active Substance: ATEZOLIZUMAB
     Indication: NON-SMALL CELL LUNG CANCER METASTATIC
     Dosage: MOST RECENT DOSE ON 11/JUN/2019
     Route: 042
     Dates: start: 20181221, end: 20190702
  5. BEVACIZUMAB. [Suspect]
     Active Substance: BEVACIZUMAB
     Indication: NON-SMALL CELL LUNG CANCER METASTATIC
     Dosage: MOST RECENT DOSE ON 11/JUN/2019
     Route: 042
     Dates: start: 20181221, end: 20190702

REACTIONS (5)
  - Herpes zoster [Fatal]
  - Tumour pain [Recovered/Resolved]
  - Pyrexia [Recovered/Resolved]
  - Pain [Recovered/Resolved]
  - Fall [Recovered/Resolved]

NARRATIVE: CASE EVENT DATE: 20190806
